FAERS Safety Report 5077726-2 (Version None)
Quarter: 2006Q3

REPORT INFORMATION
  Report Type: 
  Country: None (occurrence: None)
  Receive Date: 20060807
  Receipt Date: 20060725
  Transmission Date: 20061208
  Serious: Yes (Death, Hospitalization)
  Sender: FDA-Public Use
  Company Number: CLOF-10288

PATIENT
  Age: 61 Year
  Sex: Male

DRUGS (3)
  1. CLOFARABINE [Suspect]
     Indication: MYELOID LEUKAEMIA
     Dosage: 40 MG/M2 QD X 5 IV
     Route: 042
  2. CYTARABINE [Suspect]
     Indication: MYELOID LEUKAEMIA
     Dosage: 1000 MG/M2 QD X 5 IV
     Route: 042
  3. AMPHOTERICIN B [Concomitant]

REACTIONS (5)
  - DERMATITIS BULLOUS [None]
  - INFECTION [None]
  - NEPHROPATHY TOXIC [None]
  - RENAL FAILURE [None]
  - WHITE BLOOD CELL COUNT DECREASED [None]
